FAERS Safety Report 21170378 (Version 1)
Quarter: 2022Q3

REPORT INFORMATION
  Report Type: Spontaneous
  Country: US (occurrence: US)
  Receive Date: 20220804
  Receipt Date: 20220804
  Transmission Date: 20221026
  Serious: No
  Sender: FDA-Public Use
  Company Number: US-CHIESI-2022CHF02225

PATIENT

DRUGS (3)
  1. KENGREAL [Suspect]
     Active Substance: CANGRELOR
     Indication: Product used for unknown indication
     Dosage: UNK
     Route: 042
     Dates: start: 20220217
  2. KENGREAL [Suspect]
     Active Substance: CANGRELOR
     Dosage: UNK
     Route: 042
  3. KENGREAL [Suspect]
     Active Substance: CANGRELOR
     Dosage: UNK
     Route: 042

REACTIONS (5)
  - Off label use [Not Recovered/Not Resolved]
  - Off label use [Not Recovered/Not Resolved]
  - Off label use [Not Recovered/Not Resolved]
  - Off label use [Recovered/Resolved]
  - No adverse event [Recovered/Resolved]

NARRATIVE: CASE EVENT DATE: 20220217
